FAERS Safety Report 10995837 (Version 1)
Quarter: 2015Q2

REPORT INFORMATION
  Report Type: Spontaneous
  Country: US (occurrence: US)
  Receive Date: 20150407
  Receipt Date: 20150407
  Transmission Date: 20150821
  Serious: Yes (Hospitalization, Congenital Anomaly, Other)
  Sender: FDA-Public Use
  Company Number: US-ABBVIE-11P-163-0835580-00

PATIENT
  Sex: Male

DRUGS (1)
  1. DEPAKOTE [Suspect]
     Active Substance: DIVALPROEX SODIUM
     Indication: MATERNAL EXPOSURE TIMING UNSPECIFIED
     Route: 064

REACTIONS (18)
  - Hospitalisation [Unknown]
  - Mental impairment [Unknown]
  - Cardiac murmur [Unknown]
  - Atrial septal defect [Unknown]
  - Loss of employment [Unknown]
  - Physical disability [Unknown]
  - Syndactyly [Unknown]
  - Limb malformation [Unknown]
  - Developmental delay [Unknown]
  - Pain [Unknown]
  - Emotional distress [Unknown]
  - Congenital hand malformation [Unknown]
  - Anxiety [Unknown]
  - Anhedonia [Unknown]
  - Dissociation [Unknown]
  - Injury [Unknown]
  - Foetal exposure during pregnancy [Not Recovered/Not Resolved]
  - Deformity [Unknown]
